FAERS Safety Report 24814307 (Version 1)
Quarter: 2025Q1

REPORT INFORMATION
  Report Type: Spontaneous
  Country: US (occurrence: None)
  Receive Date: 20250106
  Receipt Date: 20250106
  Transmission Date: 20250409
  Serious: Yes (Death)
  Sender: FDA-CTU
  Company Number: None

PATIENT
  Age: 54 Year
  Sex: Male

DRUGS (8)
  1. BIKTARVY [Suspect]
     Active Substance: BICTEGRAVIR SODIUM\EMTRICITABINE\TENOFOVIR ALAFENAMIDE FUMARATE
     Indication: HIV infection
     Dosage: 50/200/25 MG DAILY ORAL ? ?
     Route: 048
     Dates: start: 20230616
  2. ACETAMINOPHEN\HYDROCODONE BITARTRATE [Concomitant]
     Active Substance: ACETAMINOPHEN\HYDROCODONE BITARTRATE
     Dates: start: 20240803
  3. SEVELAMER CARBONATE 800MG TABS [Concomitant]
  4. DULOXETINE DR 30MG CAPS [Concomitant]
     Dates: start: 20241102
  5. SERTRALINE 50MG TABS [Concomitant]
     Dates: start: 20231117
  6. CALCIUM ACETATE 667MG CAPS [Concomitant]
     Dates: start: 20240904
  7. RENA-VITE TABS [Concomitant]
     Dates: start: 20240904
  8. LOSARTAN 50MG TABS [Concomitant]
     Dates: start: 20240803

REACTIONS (1)
  - Death [None]

NARRATIVE: CASE EVENT DATE: 20250102
